FAERS Safety Report 18607241 (Version 2)
Quarter: 2021Q1

REPORT INFORMATION
  Report Type: Spontaneous
  Country: US (occurrence: US)
  Receive Date: 20201211
  Receipt Date: 20210311
  Transmission Date: 20210419
  Serious: No
  Sender: FDA-Public Use
  Company Number: US-PFIZER INC-2020488046

PATIENT
  Age: 79 Year
  Sex: Male

DRUGS (1)
  1. XELJANZ XR [Suspect]
     Active Substance: TOFACITINIB CITRATE
     Dosage: 11 MG
     Dates: start: 202011

REACTIONS (6)
  - Myalgia [Recovering/Resolving]
  - Mobility decreased [Not Recovered/Not Resolved]
  - Musculoskeletal stiffness [Recovering/Resolving]
  - Dysstasia [Unknown]
  - Therapeutic product effect incomplete [Unknown]
  - Arthropathy [Not Recovered/Not Resolved]
